FAERS Safety Report 19800521 (Version 1)
Quarter: 2021Q3

REPORT INFORMATION
  Report Type: Spontaneous
  Country: US (occurrence: US)
  Receive Date: 20210907
  Receipt Date: 20210907
  Transmission Date: 20211014
  Serious: No
  Sender: FDA-Public Use
  Company Number: US-ALLERGAN-2131200US

PATIENT
  Sex: Male
  Weight: 98.87 kg

DRUGS (5)
  1. SAPHRIS [Suspect]
     Active Substance: ASENAPINE MALEATE
     Dosage: 10 MG
     Dates: start: 2017
  2. BUSPIRONE [Concomitant]
     Active Substance: BUSPIRONE HYDROCHLORIDE
     Indication: ATTENTION DEFICIT HYPERACTIVITY DISORDER
  3. ZOLOFT [Concomitant]
     Active Substance: SERTRALINE HYDROCHLORIDE
     Indication: AGITATION
     Dosage: UNK
  4. SAPHRIS [Suspect]
     Active Substance: ASENAPINE MALEATE
     Indication: INSOMNIA
     Dosage: 5 UNK
  5. BUSPIRONE [Concomitant]
     Active Substance: BUSPIRONE HYDROCHLORIDE
     Indication: ANXIETY
     Dosage: UNK

REACTIONS (9)
  - Pruritus [Unknown]
  - Abdominal distension [Recovering/Resolving]
  - Amnesia [Recovered/Resolved]
  - Abdominal discomfort [Recovering/Resolving]
  - Abdominal pain upper [Recovering/Resolving]
  - Product availability issue [Unknown]
  - Diarrhoea [Not Recovered/Not Resolved]
  - Off label use [Unknown]
  - Somnolence [Recovered/Resolved]
